FAERS Safety Report 4317253-0 (Version None)
Quarter: 2004Q1

REPORT INFORMATION
  Report Type: 
  Country: None (occurrence: None)
  Receive Date: 20040312
  Receipt Date: 20040304
  Transmission Date: 20041129
  Serious: Yes (Disabling, Other)
  Sender: FDA-Public Use
  Company Number: 2004-03-0250

PATIENT
  Age: 3 Year
  Sex: Male

DRUGS (1)
  1. AERIUS (DESLORATADINE) SYRUP      LIKE CLARINEX [Suspect]
     Dosage: ORAL
     Route: 048
     Dates: start: 20040201

REACTIONS (3)
  - JOINT INJURY [None]
  - LIGAMENT DISORDER [None]
  - TORTICOLLIS [None]
